FAERS Safety Report 20641584 (Version 2)
Quarter: 2022Q1

REPORT INFORMATION
  Report Type: Spontaneous
  Country: CZ (occurrence: CZ)
  Receive Date: 20220328
  Receipt Date: 20220330
  Transmission Date: 20220423
  Serious: Yes (Hospitalization, Other)
  Sender: FDA-Public Use
  Company Number: CZ-Orion Corporation ORION PHARMA-MARE2022-0013

PATIENT
  Age: 59 Year
  Sex: Female

DRUGS (5)
  1. TELMISARTAN [Suspect]
     Active Substance: TELMISARTAN
     Indication: Hypertension
     Route: 065
  2. HYDROCHLOROTHIAZIDE [Suspect]
     Active Substance: HYDROCHLOROTHIAZIDE
     Indication: Hypertension
     Route: 065
  3. WARFARIN [Suspect]
     Active Substance: WARFARIN
     Indication: Anticoagulant therapy
     Route: 048
  4. AMILORIDE [Suspect]
     Active Substance: AMILORIDE
     Indication: Hypertension
     Route: 065
  5. ATORVASTATIN [Concomitant]
     Active Substance: ATORVASTATIN
     Indication: Product used for unknown indication
     Route: 065

REACTIONS (2)
  - Spinal epidural haematoma [Unknown]
  - International normalised ratio increased [Recovered/Resolved]
